FAERS Safety Report 5078952-9 (Version None)
Quarter: 2006Q3

REPORT INFORMATION
  Report Type: 
  Country: None (occurrence: None)
  Receive Date: 20060814
  Receipt Date: 20060803
  Transmission Date: 20061208
  Serious: Yes (Hospitalization)
  Sender: FDA-Public Use
  Company Number: PHBS2006SE11792

PATIENT
  Age: 33 Year
  Sex: Male

DRUGS (1)
  1. VOLTAREN [Suspect]
     Indication: ABDOMINAL PAIN
     Dosage: 75 MG, BID
     Route: 030

REACTIONS (3)
  - BLOOD CREATININE INCREASED [None]
  - COELIAC DISEASE [None]
  - LACTOSE INTOLERANCE [None]
